FAERS Safety Report 4915178-0 (Version None)
Quarter: 2006Q1

REPORT INFORMATION
  Report Type: 
  Country: None (occurrence: None)
  Receive Date: 20060216
  Receipt Date: 20060216
  Transmission Date: 20060701
  Serious: Yes (Hospitalization)
  Sender: FDA-Public Use
  Company Number: None

PATIENT
  Sex: Male
  Weight: 86.1834 kg

DRUGS (1)
  1. COUMADIN [Suspect]
     Indication: ATRIAL FIBRILLATION
     Dosage: PO PRIOR TO ADMISSION
     Route: 048

REACTIONS (3)
  - COAGULOPATHY [None]
  - HAEMORRHAGE [None]
  - SKIN LACERATION [None]
